FAERS Safety Report 5138952-7 (Version None)
Quarter: 2006Q4

REPORT INFORMATION
  Report Type: 
  Country: None (occurrence: None)
  Receive Date: 20061030
  Receipt Date: 20060522
  Transmission Date: 20070319
  Serious: No
  Sender: FDA-Public Use
  Company Number: 428-11-2908

PATIENT
  Age: 47 Year
  Sex: Male
  Weight: 67.7 kg

DRUGS (3)
  1. ADVAIR HFA [Suspect]
     Indication: ASTHMA
     Route: 055
  2. TOPROL-XL [Concomitant]
     Indication: HYPERTENSION
     Dosage: 50MG PER DAY
     Route: 048
     Dates: start: 20060101
  3. AVALIDE [Concomitant]
     Indication: HYPERTENSION
     Route: 048
     Dates: start: 20060201

REACTIONS (3)
  - AGEUSIA [None]
  - DYSGEUSIA [None]
  - DYSPNOEA [None]
